FAERS Safety Report 24424049 (Version 2)
Quarter: 2024Q4

REPORT INFORMATION
  Report Type: Spontaneous
  Country: US (occurrence: US)
  Receive Date: 20241010
  Receipt Date: 20241025
  Transmission Date: 20250114
  Serious: Yes (Hospitalization)
  Sender: TEVA
  Company Number: US-TEVA-VS-3251557

PATIENT
  Age: 32 Year
  Sex: Male

DRUGS (14)
  1. LAMOTRIGINE [Suspect]
     Active Substance: LAMOTRIGINE
     Indication: Substance use disorder
     Dosage: FOR TWO WEEKS
     Route: 065
  2. LAMOTRIGINE [Suspect]
     Active Substance: LAMOTRIGINE
     Indication: Substance use disorder
     Dosage: FOR TWO WEEKS
     Route: 065
  3. LAMOTRIGINE [Suspect]
     Active Substance: LAMOTRIGINE
     Indication: Substance use disorder
     Route: 065
  4. ALPRAZOLAM [Suspect]
     Active Substance: ALPRAZOLAM
     Indication: Intentional product misuse
     Route: 065
  5. VORTIOXETINE [Concomitant]
     Active Substance: VORTIOXETINE
     Indication: Major depression
     Route: 065
     Dates: start: 202305
  6. KETAMINE [Suspect]
     Active Substance: KETAMINE
     Indication: Drug abuse
     Route: 030
     Dates: start: 202301
  7. KETAMINE [Suspect]
     Active Substance: KETAMINE
     Indication: Drug abuse
     Route: 042
  8. KETAMINE [Suspect]
     Active Substance: KETAMINE
     Indication: Drug abuse
     Route: 045
     Dates: start: 202105
  9. KETAMINE [Suspect]
     Active Substance: KETAMINE
     Indication: Drug abuse
     Route: 045
  10. KETAMINE [Suspect]
     Active Substance: KETAMINE
     Indication: Drug abuse
     Route: 045
     Dates: start: 202202
  11. KETAMINE [Suspect]
     Active Substance: KETAMINE
     Indication: Drug abuse
     Dosage: 1-2 G
     Route: 042
     Dates: start: 202304
  12. BUPROPION [Concomitant]
     Active Substance: BUPROPION
     Indication: Major depression
     Route: 065
  13. NALTREXONE [Suspect]
     Active Substance: NALTREXONE
     Indication: Substance use disorder
     Route: 065
  14. NALTREXONE [Suspect]
     Active Substance: NALTREXONE
     Indication: Substance use disorder
     Dosage: NIGHTLY FOR THREE NIGHTS
     Route: 065

REACTIONS (5)
  - Abdominal pain [Recovering/Resolving]
  - Off label use [Unknown]
  - Drug abuse [Unknown]
  - Haematuria [Recovering/Resolving]
  - Intentional product misuse [Unknown]

NARRATIVE: CASE EVENT DATE: 20230601
